FAERS Safety Report 21683794 (Version 2)
Quarter: 2022Q4

REPORT INFORMATION
  Report Type: Spontaneous
  Country: PT (occurrence: PT)
  Receive Date: 20221205
  Receipt Date: 20221230
  Transmission Date: 20230113
  Serious: Yes (Other)
  Sender: FDA-Public Use
  Company Number: None

PATIENT
  Age: 82 Year
  Sex: Female

DRUGS (3)
  1. DEXMEDETOMIDINE HYDROCHLORIDE [Suspect]
     Active Substance: DEXMEDETOMIDINE HYDROCHLORIDE
     Indication: Anxiety
     Dosage: UNK, PFT-22100
     Route: 065
  2. DEXMEDETOMIDINE HYDROCHLORIDE [Suspect]
     Active Substance: DEXMEDETOMIDINE HYDROCHLORIDE
     Indication: Psychomotor hyperactivity
  3. HALDOL [Suspect]
     Active Substance: HALOPERIDOL
     Indication: Sedative therapy
     Dosage: UNK
     Route: 048

REACTIONS (3)
  - Ventricular tachycardia [Recovering/Resolving]
  - Cardio-respiratory arrest [Recovered/Resolved]
  - Product use in unapproved indication [Unknown]
